FAERS Safety Report 7008244-X (Version None)
Quarter: 2010Q3

REPORT INFORMATION
  Report Type: 
  Country: None (occurrence: None)
  Receive Date: 20100721
  Receipt Date: 20100427
  Transmission Date: 20110219
  Serious: No
  Sender: FDA-Public Use
  Company Number: LMI-2010-00339(0)

PATIENT
  Age: 58 Year
  Sex: Male
  Weight: 83.9154 kg

DRUGS (5)
  1. ABLAVAR [Suspect]
     Indication: AORTIC DISSECTION
     Dosage: 11 ML BY POWER INJECTION FOLLOWED BY 30 ML NORMAL SALINE FLUSH (11 ML), INTRAVENOUS
     Route: 042
     Dates: start: 20100427, end: 20100427
  2. LISINOPRIL [Concomitant]
  3. ATENOLOL [Concomitant]
  4. SIMVASTATIN [Concomitant]
  5. ASPIRIN [Concomitant]

REACTIONS (1)
  - PRURITUS GENITAL [None]
